FAERS Safety Report 18632950 (Version 1)
Quarter: 2020Q4

REPORT INFORMATION
  Report Type: Spontaneous
  Country: DK (occurrence: DK)
  Receive Date: 20201218
  Receipt Date: 20201218
  Transmission Date: 20210114
  Serious: Yes (Other)
  Sender: FDA-Public Use
  Company Number: DK-TEVA-2020-DK-1858797

PATIENT
  Age: 78 Year
  Sex: Female

DRUGS (3)
  1. QUETIAPINE ^TEVA^ [Suspect]
     Active Substance: QUETIAPINE
     Indication: BIPOLAR DISORDER
     Dosage: 50 MG
     Route: 048
     Dates: start: 20200225, end: 20200225
  2. QUETIAPINE ^TEVA^ [Suspect]
     Active Substance: QUETIAPINE
     Indication: BIPOLAR DISORDER
     Dosage: DOSE: 25 MG ONCE DAILY + 25 MG IF NECESSARY.
     Route: 048
     Dates: start: 20191217, end: 20200224
  3. QUETIAPINE ^TEVA^ [Suspect]
     Active Substance: QUETIAPINE
     Indication: BIPOLAR DISORDER
     Dosage: 25 MG
     Route: 048
     Dates: start: 20200226

REACTIONS (2)
  - Sedation [Unknown]
  - Dementia [Not Recovered/Not Resolved]

NARRATIVE: CASE EVENT DATE: 20191223
